FAERS Safety Report 6420100-4 (Version None)
Quarter: 2009Q4

REPORT INFORMATION
  Report Type: 
  Country: None (occurrence: None)
  Receive Date: 20091027
  Receipt Date: 20091012
  Transmission Date: 20100525
  Serious: Yes (Hospitalization)
  Sender: FDA-Public Use
  Company Number: 002152

PATIENT
  Sex: Female

DRUGS (5)
  1. LACOSIMADE (VIMPAT) [Suspect]
     Indication: EPILEPSY
     Dosage: 900 MG TID ORAL, 800 MG TID ORAL
     Route: 048
     Dates: start: 20090915, end: 20091007
  2. LACOSIMADE (VIMPAT) [Suspect]
     Indication: EPILEPSY
     Dosage: 900 MG TID ORAL, 800 MG TID ORAL
     Route: 048
     Dates: start: 20091008
  3. PREGABALIN [Concomitant]
  4. LICARBAZEPINE [Concomitant]
  5. CLOBAZAM [Concomitant]

REACTIONS (7)
  - CONDITION AGGRAVATED [None]
  - DIZZINESS [None]
  - EPILEPSY [None]
  - EXTRADURAL HAEMATOMA [None]
  - FALL [None]
  - FATIGUE [None]
  - GRAND MAL CONVULSION [None]
